FAERS Safety Report 14558936 (Version 4)
Quarter: 2018Q1

REPORT INFORMATION
  Report Type: Report from Study
  Country: BE (occurrence: BE)
  Receive Date: 20180221
  Receipt Date: 20180320
  Transmission Date: 20180509
  Serious: Yes (Hospitalization, Other)
  Sender: FDA-Public Use
  Company Number: BE-ASTRAZENECA-2018SE21623

PATIENT
  Age: 78 Year
  Sex: Female
  Weight: 66.8 kg

DRUGS (12)
  1. STUDY PROCEDURE [Suspect]
     Active Substance: INVESTIGATIONAL PRODUCT
     Route: 065
  2. L-THYROXINE [Concomitant]
     Active Substance: LEVOTHYROXINE
     Dates: start: 201312
  3. HYALURONATE SODIUM [Concomitant]
     Active Substance: HYALURONATE SODIUM
     Dates: start: 20150815
  4. DAFLON (DIOSMIN/HESPERIDIN) [Concomitant]
     Active Substance: DIOSMIN\HESPERIDIN
     Dates: start: 20170704
  5. D-CURE [Concomitant]
     Active Substance: CHOLECALCIFEROL
     Dates: start: 201306
  6. CYCLOPHOSPHAMIDE. [Concomitant]
     Active Substance: CYCLOPHOSPHAMIDE
     Indication: PRODUCT USED FOR UNKNOWN INDICATION
     Dates: start: 20131214, end: 20140125
  7. FULVESTRANT. [Suspect]
     Active Substance: FULVESTRANT
     Indication: BREAST CANCER
     Dosage: 500 MG, CYCLICAL
     Route: 030
     Dates: start: 20150121
  8. PARACODINE [Concomitant]
     Active Substance: DIHYDROCODEINE BITARTRATE
     Dates: start: 20171219
  9. BLINDED ABEMACICLIB [Suspect]
     Active Substance: ABEMACICLIB
     Indication: BREAST CANCER
     Route: 048
     Dates: start: 20150121
  10. GELATIN [Concomitant]
     Active Substance: GELATIN
     Dates: start: 20170926
  11. OMEPRAZOL [Concomitant]
     Active Substance: OMEPRAZOLE
     Dates: start: 20180125
  12. BLINDED PLACEBO [Suspect]
     Active Substance: INVESTIGATIONAL PRODUCT
     Indication: BREAST CANCER
     Route: 048
     Dates: start: 20150121

REACTIONS (1)
  - Hypercalcaemia [Recovered/Resolved]

NARRATIVE: CASE EVENT DATE: 20180213
